FAERS Safety Report 13842489 (Version 3)
Quarter: 2017Q3

REPORT INFORMATION
  Report Type: Spontaneous
  Country: US (occurrence: US)
  Receive Date: 20170808
  Receipt Date: 20170921
  Transmission Date: 20171127
  Serious: Yes (Death, Life-Threatening, Hospitalization, Other)
  Sender: FDA-Public Use
  Company Number: US-AUROBINDO-AUR-APL-2017-38365

PATIENT
  Age: 28 Year
  Sex: Male

DRUGS (20)
  1. RUXOLITINIB [Suspect]
     Active Substance: RUXOLITINIB
     Indication: GRAFT VERSUS HOST DISEASE IN LUNG
     Dosage: 5 MG, TWO TIMES A DAY
  2. CYCLOPHOSPHAMIDE. [Suspect]
     Active Substance: CYCLOPHOSPHAMIDE
     Indication: GRAFT VERSUS HOST DISEASE IN SKIN
     Route: 065
  3. BUDESONIDE. [Concomitant]
     Active Substance: BUDESONIDE
     Dosage: INHALED
     Route: 055
  4. RUXOLITINIB [Suspect]
     Active Substance: RUXOLITINIB
  5. DEXAMETHASONE. [Suspect]
     Active Substance: DEXAMETHASONE
     Indication: GRAFT VERSUS HOST DISEASE IN LUNG
     Route: 065
  6. RUXOLITINIB [Suspect]
     Active Substance: RUXOLITINIB
  7. PENTAMIDINE [Concomitant]
     Active Substance: PENTAMIDINE
     Indication: PRODUCT USED FOR UNKNOWN INDICATION
     Dosage: INHALED PENTAMIDINE EVERY FOUR WEEKS
     Route: 055
  8. PENTAMIDINE [Concomitant]
     Active Substance: PENTAMIDINE
     Dosage: INHALED PENTAMIDINE EVERY FOUR WEEKS
     Route: 055
  9. BUDESONIDE. [Concomitant]
     Active Substance: BUDESONIDE
     Dosage: INHALED
     Route: 055
  10. MONTELUKAST [Concomitant]
     Active Substance: MONTELUKAST SODIUM
     Indication: CHRONIC SINUSITIS
     Route: 065
  11. PREDNISONE. [Suspect]
     Active Substance: PREDNISONE
     Indication: GRAFT VERSUS HOST DISEASE IN SKIN
     Route: 065
  12. DEXAMETHASONE. [Suspect]
     Active Substance: DEXAMETHASONE
  13. PENICILLIN VK [Concomitant]
     Active Substance: PENICILLIN V POTASSIUM
     Indication: PRODUCT USED FOR UNKNOWN INDICATION
     Route: 065
  14. MYCOPHENOLATE MOFETIL. [Suspect]
     Active Substance: MYCOPHENOLATE MOFETIL
     Indication: GRAFT VERSUS HOST DISEASE IN SKIN
     Route: 065
  15. BUDESONIDE. [Concomitant]
     Active Substance: BUDESONIDE
     Indication: CHRONIC SINUSITIS
     Dosage: INHALED
     Route: 055
  16. VORICONAZOLE. [Concomitant]
     Active Substance: VORICONAZOLE
     Indication: PRODUCT USED FOR UNKNOWN INDICATION
     Route: 065
  17. DEXAMETHASONE. [Suspect]
     Active Substance: DEXAMETHASONE
  18. TACROLIMUS. [Suspect]
     Active Substance: TACROLIMUS
     Indication: GRAFT VERSUS HOST DISEASE IN SKIN
     Route: 065
  19. PENTAMIDINE [Concomitant]
     Active Substance: PENTAMIDINE
     Dosage: INHALED PENTAMIDINE EVERY FOUR WEEKS
     Route: 055
  20. VALACICLOVIR [Concomitant]
     Active Substance: VALACYCLOVIR HYDROCHLORIDE
     Indication: PRODUCT USED FOR UNKNOWN INDICATION

REACTIONS (6)
  - Abscess [Fatal]
  - Septic shock [Unknown]
  - Pancreatitis acute [Unknown]
  - Nocardiosis [Fatal]
  - Respiratory failure [Unknown]
  - Interstitial lung disease [Unknown]
